FAERS Safety Report 18259777 (Version 32)
Quarter: 2025Q3

REPORT INFORMATION
  Report Type: Report from Study
  Country: US (occurrence: US)
  Receive Date: 20200912
  Receipt Date: 20250911
  Transmission Date: 20251021
  Serious: Yes (Other)
  Sender: TAKEDA
  Company Number: US-SHIRE-US202029725

PATIENT
  Age: 67 Year
  Sex: Female
  Weight: 76 kg

DRUGS (50)
  1. HUMAN IMMUNOGLOBULIN G [Suspect]
     Active Substance: HUMAN IMMUNOGLOBULIN G
     Indication: Immunodeficiency common variable
     Dosage: 35 GRAM, Q4WEEKS
  2. HUMAN IMMUNOGLOBULIN G [Suspect]
     Active Substance: HUMAN IMMUNOGLOBULIN G
     Dosage: 35 GRAM, Q5WEEKS
  3. HUMAN IMMUNOGLOBULIN G [Suspect]
     Active Substance: HUMAN IMMUNOGLOBULIN G
     Dosage: 35 GRAM, Q4WEEKS
  4. DIPHENHYDRAMINE [Concomitant]
     Active Substance: DIPHENHYDRAMINE
  5. ZOLOFT [Concomitant]
     Active Substance: SERTRALINE HYDROCHLORIDE
  6. CYANOCOBALAMIN [Concomitant]
     Active Substance: CYANOCOBALAMIN
  7. DEXAMETHASONE SODIUM PHOSPHATE [Concomitant]
     Active Substance: DEXAMETHASONE SODIUM PHOSPHATE
  8. VITAMIN D3 [Concomitant]
     Active Substance: CHOLECALCIFEROL
  9. EPINEPHRINE [Concomitant]
     Active Substance: EPINEPHRINE
  10. FEXOFENADINE HYDROCHLORIDE [Concomitant]
     Active Substance: FEXOFENADINE HYDROCHLORIDE
  11. SODIUM CHLORIDE [Concomitant]
     Active Substance: SODIUM CHLORIDE
  12. METFORMIN [Concomitant]
     Active Substance: METFORMIN HYDROCHLORIDE
  13. NURTEC ODT [Concomitant]
     Active Substance: RIMEGEPANT SULFATE
  14. ALLEGRA ALLERGY [Concomitant]
     Active Substance: FEXOFENADINE HYDROCHLORIDE
  15. BRUKINSA [Concomitant]
     Active Substance: ZANUBRUTINIB
  16. PEPCID [Concomitant]
     Active Substance: FAMOTIDINE
  17. ACETAMINOPHEN [Concomitant]
     Active Substance: ACETAMINOPHEN
  18. ZINC [Concomitant]
     Active Substance: ZINC
  19. SINGULAIR [Concomitant]
     Active Substance: MONTELUKAST SODIUM
  20. SODIUM CHLORIDE [Concomitant]
     Active Substance: SODIUM CHLORIDE
  21. ONDANSETRON [Concomitant]
     Active Substance: ONDANSETRON
  22. TRIPLE MAGNESIUM COMPLEX [Concomitant]
  23. CEFUROXIME [Concomitant]
     Active Substance: CEFUROXIME
  24. DEXAMETHASONE INTENSOL [Concomitant]
     Active Substance: DEXAMETHASONE
  25. CALQUENCE [Concomitant]
     Active Substance: ACALABRUTINIB
  26. MOBIC [Concomitant]
     Active Substance: MELOXICAM
  27. ADVAIR HFA [Concomitant]
     Active Substance: FLUTICASONE PROPIONATE\SALMETEROL XINAFOATE
  28. LIDOCAINE [Concomitant]
     Active Substance: LIDOCAINE
  29. FAMOTIDINE [Concomitant]
     Active Substance: FAMOTIDINE
  30. Lmx [Concomitant]
  31. MUPIROCIN [Concomitant]
     Active Substance: MUPIROCIN
  32. DEXAMETHASONE [Concomitant]
     Active Substance: DEXAMETHASONE
  33. FEXOFENADINE [Concomitant]
     Active Substance: FEXOFENADINE HYDROCHLORIDE
  34. MELOXICAM [Concomitant]
     Active Substance: MELOXICAM
  35. CYCLOPHOSPHAMIDE [Concomitant]
     Active Substance: CYCLOPHOSPHAMIDE
  36. ADVAIR HFA [Concomitant]
     Active Substance: FLUTICASONE PROPIONATE\SALMETEROL XINAFOATE
  37. ZOFRAN [Concomitant]
     Active Substance: ONDANSETRON HYDROCHLORIDE
  38. ALLEGRA [Concomitant]
     Active Substance: FEXOFENADINE HYDROCHLORIDE
  39. ALLOPURINOL [Concomitant]
     Active Substance: ALLOPURINOL
  40. PROCHLORPERAZINE MALEATE [Concomitant]
     Active Substance: PROCHLORPERAZINE MALEATE
  41. CHLORAMBUCIL [Concomitant]
     Active Substance: CHLORAMBUCIL
  42. DIPHENHYDRAMINE HYDROCHLORIDE [Concomitant]
     Active Substance: DIPHENHYDRAMINE HYDROCHLORIDE
  43. OZEMPIC [Concomitant]
     Active Substance: SEMAGLUTIDE
  44. BREO ELLIPTA [Concomitant]
     Active Substance: FLUTICASONE FUROATE\VILANTEROL TRIFENATATE
  45. IVIZIA DRY EYE [Concomitant]
     Active Substance: POVIDONE
  46. PATADAY ONCE DAILY RELIEF [Concomitant]
     Active Substance: OLOPATADINE HYDROCHLORIDE
  47. LEUKERAN [Concomitant]
     Active Substance: CHLORAMBUCIL
  48. AMANTADINE [Concomitant]
     Active Substance: AMANTADINE
  49. ONDANSETRON HYDROCHLORIDE [Concomitant]
     Active Substance: ONDANSETRON HYDROCHLORIDE
  50. VENCLEXTA [Concomitant]
     Active Substance: VENETOCLAX

REACTIONS (27)
  - Non-Hodgkin^s lymphoma [Unknown]
  - Follicular lymphoma [Unknown]
  - Infusion related reaction [Unknown]
  - Discharge [Unknown]
  - Seasonal allergy [Not Recovered/Not Resolved]
  - Bronchitis [Not Recovered/Not Resolved]
  - Candida infection [Unknown]
  - Insurance issue [Unknown]
  - Product use issue [Unknown]
  - Product distribution issue [Unknown]
  - COVID-19 [Unknown]
  - Poor venous access [Unknown]
  - Viral infection [Unknown]
  - Urinary tract infection [Unknown]
  - Multiple allergies [Unknown]
  - Illness [Unknown]
  - Sinusitis [Not Recovered/Not Resolved]
  - Upper respiratory tract infection [Unknown]
  - Cough [Unknown]
  - Malaise [Unknown]
  - Chest discomfort [Unknown]
  - Dyspnoea [Unknown]
  - Hypersensitivity [Unknown]
  - Nausea [Recovered/Resolved]
  - Dizziness [Unknown]
  - Headache [Unknown]
  - Neck pain [Unknown]

NARRATIVE: CASE EVENT DATE: 20241001
